FAERS Safety Report 6302782-0 (Version None)
Quarter: 2009Q3

REPORT INFORMATION
  Report Type: 
  Country: None (occurrence: None)
  Receive Date: 20090810
  Receipt Date: 20090710
  Transmission Date: 20100115
  Serious: No
  Sender: FDA-Public Use
  Company Number: US-BAYER-200912328BCC

PATIENT
  Age: 64 Year
  Sex: Female
  Weight: 51 kg

DRUGS (15)
  1. ALEVE (CAPLET) [Suspect]
     Indication: PAIN
     Dosage: TOTAL DAILY DOSE: 660 MG  UNIT DOSE: 220 MG
     Route: 048
     Dates: start: 20090101, end: 20090101
  2. ALEVE [Suspect]
     Indication: PAIN
     Dosage: TOTAL DAILY DOSE: 660 MG  UNIT DOSE: 220 MG
     Route: 048
     Dates: start: 20090707, end: 20090708
  3. ALEVE [Suspect]
     Dosage: TOTAL DAILY DOSE: 440 MG  UNIT DOSE: 220 MG
     Route: 048
     Dates: start: 20090709
  4. GLUCOSAMINE CHONDROITIN [Concomitant]
     Route: 065
  5. VITAMIN WORLD BILBERRY [Concomitant]
     Route: 065
  6. LUTEIN [Concomitant]
     Route: 065
  7. FINEST NATURAL PROBIOTIC [Concomitant]
     Route: 065
  8. FINEST NATURAL VITAMIN B [Concomitant]
     Route: 065
  9. NATURE MADE FISH OIL [Concomitant]
     Route: 065
  10. OSCAL [Concomitant]
     Route: 065
  11. TUMS [Concomitant]
     Route: 065
  12. FINEST NATURAL VITAMIN D [Concomitant]
     Route: 065
  13. NATURE MADE MULTIVITAMIN [Concomitant]
     Route: 065
  14. NATURE MADE VITAMIN C [Concomitant]
     Route: 065
  15. NATURE MADE FLAXSEED [Concomitant]
     Route: 065

REACTIONS (1)
  - PAIN [None]
